FAERS Safety Report 12378152 (Version 1)
Quarter: 2016Q2

REPORT INFORMATION
  Report Type: Report from Study
  Country: AU (occurrence: AU)
  Receive Date: 20160517
  Receipt Date: 20160517
  Transmission Date: 20160815
  Serious: Yes (Other)
  Sender: FDA-Public Use
  Company Number: AU-GILEAD-2016-0213694

PATIENT
  Age: 51 Year
  Sex: Male

DRUGS (17)
  1. CALTRATE                           /00944201/ [Concomitant]
  2. OXYCODONE [Concomitant]
     Active Substance: OXYCODONE
  3. QUETIAPINE. [Concomitant]
     Active Substance: QUETIAPINE
  4. SPIRIVA [Concomitant]
     Active Substance: TIOTROPIUM BROMIDE MONOHYDRATE
  5. AZT [Concomitant]
     Active Substance: ZIDOVUDINE
     Indication: HIV INFECTION
     Route: 065
  6. MS CONTIN [Concomitant]
     Active Substance: MORPHINE SULFATE
  7. SALBUTAMOL [Concomitant]
     Active Substance: ALBUTEROL
  8. SERETIDE [Concomitant]
     Active Substance: FLUTICASONE PROPIONATE\SALMETEROL XINAFOATE
  9. EMTRICITABINE/TENOFOVIR DISOPROXIL FUMARATE [Suspect]
     Active Substance: EMTRICITABINE\TENOFOVIR DISOPROXIL
     Indication: HIV INFECTION
     Dosage: UNK
     Route: 065
     Dates: start: 2007
  10. RITONAVIR. [Suspect]
     Active Substance: RITONAVIR
     Indication: HIV INFECTION
     Route: 065
  11. RALTEGRAVIR. [Concomitant]
     Active Substance: RALTEGRAVIR
     Indication: HIV INFECTION
  12. PANADOL                            /00020001/ [Concomitant]
  13. PREGABALIN. [Concomitant]
     Active Substance: PREGABALIN
  14. LOPERAMIDE [Concomitant]
     Active Substance: LOPERAMIDE
  15. VENLAFAXINE [Concomitant]
     Active Substance: VENLAFAXINE HYDROCHLORIDE
  16. DIAZEPAM. [Concomitant]
     Active Substance: DIAZEPAM
  17. PROCHLORPERAZINE. [Concomitant]
     Active Substance: PROCHLORPERAZINE

REACTIONS (2)
  - Osteonecrosis [Unknown]
  - Osteoporotic fracture [Unknown]

NARRATIVE: CASE EVENT DATE: 2007
